FAERS Safety Report 8542224-8 (Version None)
Quarter: 2012Q3

REPORT INFORMATION
  Report Type: 
  Country: None (occurrence: None)
  Receive Date: 20120726
  Receipt Date: 20111013
  Transmission Date: 20120928
  Serious: No
  Sender: FDA-Public Use
  Company Number: US-ASTRAZENECA-2011SE61713

PATIENT
  Age: 35 Year
  Sex: Female
  Weight: 86.2 kg

DRUGS (4)
  1. LAMICTAL [Concomitant]
     Indication: DEPRESSION
  2. FUMARINE [Concomitant]
  3. SEROQUEL XR [Suspect]
     Indication: BIPOLAR DISORDER
     Route: 048
  4. ZERLOF [Concomitant]

REACTIONS (2)
  - DRUG DOSE OMISSION [None]
  - MALAISE [None]
